FAERS Safety Report 16391155 (Version 4)
Quarter: 2019Q3

REPORT INFORMATION
  Report Type: Not Available
  Country: US (occurrence: US)
  Receive Date: 20190604
  Receipt Date: 20190815
  Transmission Date: 20191004
  Serious: Yes (Hospitalization)
  Sender: FDA-Public Use
  Company Number: US-NEUROCRINE BIOSCIENCES INC.-2019NBI01365

PATIENT
  Sex: Male

DRUGS (27)
  1. INGREZZA [Suspect]
     Active Substance: VALBENAZINE
     Indication: TARDIVE DYSKINESIA
     Route: 048
     Dates: start: 20171215
  2. ATORVASTATIN CALCIUM. [Concomitant]
     Active Substance: ATORVASTATIN CALCIUM
     Route: 048
     Dates: start: 20140325
  3. POTASSIUM CHLORIDE ER [Concomitant]
     Active Substance: POTASSIUM CHLORIDE
     Route: 048
     Dates: start: 20160406
  4. QUETIAPINE FUMARATE. [Concomitant]
     Active Substance: QUETIAPINE FUMARATE
     Dosage: BEDTIME
     Route: 048
     Dates: start: 20170531
  5. FUROSEMIDE. [Concomitant]
     Active Substance: FUROSEMIDE
     Route: 048
     Dates: start: 20150529
  6. VITAMIN C [Concomitant]
     Active Substance: ASCORBIC ACID
     Route: 048
     Dates: start: 20160405
  7. CLONAZEPAM. [Concomitant]
     Active Substance: CLONAZEPAM
     Route: 048
     Dates: start: 20150529
  8. GABAPENTIN. [Concomitant]
     Active Substance: GABAPENTIN
     Route: 048
     Dates: start: 20180515
  9. DEPAKOTE ER [Concomitant]
     Active Substance: DIVALPROEX SODIUM
     Dosage: 2 TABLETS EVERY MORNING AND 4 TABLETS AT BEDTIME
     Route: 048
     Dates: start: 20140508
  10. FLUDROCORTISONE ACETATE. [Concomitant]
     Active Substance: FLUDROCORTISONE ACETATE
     Route: 048
     Dates: start: 20170324
  11. FINASTERIDE. [Concomitant]
     Active Substance: FINASTERIDE
     Route: 048
     Dates: start: 20160721
  12. MUCINEX [Concomitant]
     Active Substance: GUAIFENESIN
     Route: 048
     Dates: start: 20170125
  13. BACITRACIN. [Concomitant]
     Active Substance: BACITRACIN
     Dosage: 500 UNIT/GM; 3 TIMES DAILY AS NEEDED
     Route: 061
     Dates: start: 20170324
  14. MVI [Concomitant]
     Active Substance: VITAMINS
  15. GABAPENTIN. [Concomitant]
     Active Substance: GABAPENTIN
     Dosage: AT BEDTIME
     Route: 048
     Dates: start: 20180515
  16. CARBAMAZEPINE. [Concomitant]
     Active Substance: CARBAMAZEPINE
     Route: 048
     Dates: start: 20150529
  17. GABAPENTIN. [Concomitant]
     Active Substance: GABAPENTIN
     Dosage: 400 MG IN THE MORNING AND 800 MG AT BEDTIME
     Route: 048
  18. ACETAMINOPHEN. [Concomitant]
     Active Substance: ACETAMINOPHEN
     Indication: MUSCULOSKELETAL PAIN
     Dosage: 2 TABLETS EVERY 6 HOURS AS NEEDED
     Route: 048
  19. ACETAMINOPHEN. [Concomitant]
     Active Substance: ACETAMINOPHEN
     Indication: BODY TEMPERATURE INCREASED
  20. MELOXICAM. [Concomitant]
     Active Substance: MELOXICAM
     Dosage: TAKE WITH FOOD
     Dates: start: 20151104
  21. DULCOLAX NOS [Concomitant]
     Active Substance: BISACODYL OR DOCUSATE SODIUM
     Dosage: INSERT 1 SUPPOSITORY AND WAIT 1 HOUR. IF NO RESULTS, USE 1 MORE. MAY USE 1 OR 2 EVERY OTHER DAY.
     Route: 054
     Dates: start: 20160115
  22. METAMUCIL [Concomitant]
     Active Substance: PLANTAGO SEED
     Dosage: 1 TABLESPOON TWICE A DAY
     Dates: start: 20150713
  23. MELOXICAM. [Concomitant]
     Active Substance: MELOXICAM
     Route: 048
  24. INGREZZA [Suspect]
     Active Substance: VALBENAZINE
     Route: 048
     Dates: start: 20180112, end: 20190731
  25. GABAPENTIN. [Concomitant]
     Active Substance: GABAPENTIN
     Route: 048
     Dates: start: 20180515
  26. MIRALAX [Concomitant]
     Active Substance: POLYETHYLENE GLYCOL 3350
     Indication: CONSTIPATION
     Dosage: 1 CAPFUL (17GM) IN 8 OUNCES OF WATER WITH METAMUCIL
     Route: 048
     Dates: start: 20160115
  27. TAMSULOSIN HCL [Concomitant]
     Active Substance: TAMSULOSIN HYDROCHLORIDE
     Route: 048
     Dates: start: 20160721

REACTIONS (12)
  - Pneumonia [Recovering/Resolving]
  - Skin abrasion [Unknown]
  - Pneumonia [Unknown]
  - Muscle twitching [Not Recovered/Not Resolved]
  - Tremor [Unknown]
  - Abnormal loss of weight [Not Recovered/Not Resolved]
  - Insomnia [Recovering/Resolving]
  - Gait disturbance [Unknown]
  - Urinary tract infection [Recovering/Resolving]
  - Balance disorder [Unknown]
  - Urinary incontinence [Not Recovered/Not Resolved]
  - Obsessive-compulsive disorder [Unknown]

NARRATIVE: CASE EVENT DATE: 2018
